FAERS Safety Report 4678518-6 (Version None)
Quarter: 2005Q2

REPORT INFORMATION
  Report Type: 
  Country: None (occurrence: None)
  Receive Date: 20050601
  Receipt Date: 20050517
  Transmission Date: 20051028
  Serious: Yes (Death, Hospitalization)
  Sender: FDA-Public Use
  Company Number: US-JNJFOC-20050506785

PATIENT
  Age: 71 Year
  Sex: Male

DRUGS (2)
  1. DOXIL [Suspect]
     Indication: MULTIPLE MYELOMA
     Route: 042
  2. VELCADE [Suspect]
     Indication: MULTIPLE MYELOMA
     Dosage: 1.3 MG.M2 IV DAYS 1,4, 8, AND 11 EVERY 21 DAYS
     Route: 042

REACTIONS (1)
  - INTESTINAL PERFORATION [None]
